FAERS Safety Report 6178062-3 (Version None)
Quarter: 2009Q2

REPORT INFORMATION
  Report Type: 
  Country: None (occurrence: None)
  Receive Date: 20090501
  Receipt Date: 20090501
  Transmission Date: 20091009
  Serious: Yes (Life-Threatening, Hospitalization)
  Sender: FDA-Public Use
  Company Number: None

PATIENT
  Sex: Female
  Weight: 66.6788 kg

DRUGS (12)
  1. SUCCINYLCHOLINE [Suspect]
     Indication: ANAESTHESIA
     Dosage: CONTINUOUS-3HRS INHALED
     Dates: start: 20090417
  2. MIDAZOLAM HCL [Concomitant]
  3. FENTANYL [Concomitant]
  4. PROPOFOL [Concomitant]
  5. VECURONIUM BROMIDE [Concomitant]
  6. BUPIVACAINE [Concomitant]
  7. HYDROMORPHONE HCL [Concomitant]
  8. DEXAMETHASONE 4MG TAB [Concomitant]
  9. DIPHENHYDRAMINE HCL [Concomitant]
  10. DROPERIDOL [Concomitant]
  11. PHENYLEPHRINE [Concomitant]
  12. CALCIUM GLUCONATE [Concomitant]

REACTIONS (2)
  - END-TIDAL CO2 INCREASED [None]
  - PYREXIA [None]
